FAERS Safety Report 7632645-X (Version None)
Quarter: 2011Q3

REPORT INFORMATION
  Report Type: 
  Country: None (occurrence: None)
  Receive Date: 20110725
  Receipt Date: 20101105
  Transmission Date: 20111222
  Serious: No
  Sender: FDA-Public Use
  Company Number: US-BRISTOL-MYERS SQUIBB COMPANY-15372709

PATIENT
  Age: 55 Year
  Sex: Female
  Weight: 61 kg

DRUGS (7)
  1. MESTINON [Concomitant]
     Indication: MYASTHENIA GRAVIS
     Route: 048
     Dates: start: 19840101
  2. ATIVAN [Concomitant]
     Indication: NERVOUSNESS
     Route: 048
  3. WARFARIN SODIUM [Suspect]
     Indication: COAGULOPATHY
     Dosage: 1 DF=3MG ALTERNATING 3.5 MGQ NIGHT,4MG,PER ORAL FROM 03OCT10.
     Route: 048
     Dates: start: 20100901
  4. LOMOTIL [Concomitant]
     Indication: PROPHYLAXIS
     Dosage: 1 DF=2.5 UNITS NOT SPECIFIED.
     Route: 048
     Dates: start: 19850101
  5. OSCAL [Concomitant]
     Indication: SUPPLEMENTATION THERAPY
     Route: 048
  6. AXID [Concomitant]
     Indication: PROPHYLAXIS
     Dosage: 1DF-150 UNITS NOT SPECIFIED
     Route: 048
     Dates: start: 20100922
  7. DEXLANSOPRAZOLE [Interacting]
     Indication: GASTROOESOPHAGEAL REFLUX DISEASE
     Route: 048
     Dates: start: 20101002

REACTIONS (4)
  - DRUG INTERACTION [None]
  - MUSCULOSKELETAL CHEST PAIN [None]
  - ABDOMINAL PAIN UPPER [None]
  - PAIN [None]
